FAERS Safety Report 10008226 (Version 3)
Quarter: 2015Q3

REPORT INFORMATION
  Report Type: Spontaneous
  Country: US (occurrence: US)
  Receive Date: 20140313
  Receipt Date: 20150814
  Transmission Date: 20151125
  Serious: No
  Sender: FDA-Public Use
  Company Number: US-GILEAD-2013-0072019

PATIENT
  Sex: Male

DRUGS (12)
  1. LETAIRIS [Suspect]
     Active Substance: AMBRISENTAN
     Indication: PRODUCT USED FOR UNKNOWN INDICATION
     Dosage: 5 MG, QD
  2. METOPROLOL [Concomitant]
     Active Substance: METOPROLOL
  3. CENTRUM SILVER                     /02363801/ [Concomitant]
     Active Substance: VITAMINS
  4. ADCIRCA [Concomitant]
     Active Substance: TADALAFIL
  5. FUROSEMIDE. [Concomitant]
     Active Substance: FUROSEMIDE
  6. FOLIC ACID. [Concomitant]
     Active Substance: FOLIC ACID
  7. OMEGA 3                            /01334101/ [Concomitant]
     Active Substance: OMEGA-3 FATTY ACIDS
  8. SYNTHROID [Concomitant]
     Active Substance: LEVOTHYROXINE SODIUM
  9. SPIRONOLACTONE. [Concomitant]
     Active Substance: SPIRONOLACTONE
  10. ATORVASTATIN [Concomitant]
     Active Substance: ATORVASTATIN
  11. LOSARTAN. [Concomitant]
     Active Substance: LOSARTAN
  12. GLUCOSAMINE [Concomitant]
     Active Substance: GLUCOSAMINE

REACTIONS (3)
  - Unevaluable event [Unknown]
  - Deafness [Unknown]
  - Middle ear effusion [Unknown]
